FAERS Safety Report 7644346-2 (Version None)
Quarter: 2011Q3

REPORT INFORMATION
  Report Type: 
  Country: None (occurrence: None)
  Receive Date: 20110729
  Receipt Date: 20110718
  Transmission Date: 20111222
  Serious: Yes (Hospitalization)
  Sender: FDA-Public Use
  Company Number: US-ELI_LILLY_AND_COMPANY-US201106004254

PATIENT
  Sex: Female
  Weight: 132.43 kg

DRUGS (18)
  1. MAXZIDE [Concomitant]
     Dosage: UNK
  2. ENALAPRIL MALEATE [Concomitant]
     Dosage: UNK
  3. LORATADINE [Concomitant]
  4. GLUCOPHAGE [Concomitant]
     Indication: TYPE 2 DIABETES MELLITUS
     Dosage: 1000 MG, BID
     Route: 058
  5. JANUVIA [Concomitant]
     Indication: TYPE 2 DIABETES MELLITUS
     Dosage: UNK UNK, QD
  6. MICRO-K [Concomitant]
     Dosage: UNK
  7. LYRICA [Concomitant]
     Dosage: UNK
  8. VICODIN [Concomitant]
     Indication: PAIN
     Dosage: UNK
  9. ASPIRIN [Concomitant]
     Route: 048
  10. BYETTA [Suspect]
     Dosage: 10 UG, BID
     Dates: end: 20110601
  11. AVANDIA [Concomitant]
     Dosage: UNK
  12. FERROUS SULFATE TAB [Concomitant]
     Dosage: UNK
     Route: 048
  13. ACTOS [Concomitant]
     Dosage: UNK
  14. GLUCOTROL [Concomitant]
     Dosage: UNK UNK, QD
  15. ATENOLOL [Concomitant]
     Dosage: UNK
     Route: 048
  16. BYETTA [Suspect]
     Indication: TYPE 2 DIABETES MELLITUS
     Dosage: 5 UG, BID
     Dates: start: 20110515
  17. ALLOPURINOL [Concomitant]
     Dosage: UNK
     Route: 048
  18. PRILOSEC [Concomitant]
     Dosage: UNK

REACTIONS (19)
  - INJURY [None]
  - WEIGHT DECREASED [None]
  - DIZZINESS [None]
  - MICTURITION DISORDER [None]
  - PAIN [None]
  - CONTUSION [None]
  - BLOOD GLUCOSE INCREASED [None]
  - OFF LABEL USE [None]
  - NAUSEA [None]
  - ASTHENIA [None]
  - DIARRHOEA [None]
  - FALL [None]
  - DEHYDRATION [None]
  - VOMITING [None]
  - GASTROINTESTINAL INFECTION [None]
  - DECREASED APPETITE [None]
  - URINE OUTPUT INCREASED [None]
  - FLUSHING [None]
  - OEDEMA PERIPHERAL [None]
